FAERS Safety Report 7949972-9 (Version None)
Quarter: 2011Q4

REPORT INFORMATION
  Report Type: 
  Country: None (occurrence: None)
  Receive Date: 20111130
  Receipt Date: 20111120
  Transmission Date: 20120403
  Serious: Yes (Death)
  Sender: FDA-Public Use
  Company Number: KR-PFIZER INC-2011281276

PATIENT
  Age: 72 Year
  Sex: Female

DRUGS (1)
  1. VORICONAZOLE [Suspect]
     Indication: PNEUMONIA FUNGAL
     Route: 042

REACTIONS (3)
  - RESPIRATORY FAILURE [None]
  - PRODUCTIVE COUGH [None]
  - CONDITION AGGRAVATED [None]
